FAERS Safety Report 4494321-4 (Version None)
Quarter: 2004Q4

REPORT INFORMATION
  Report Type: 
  Country: None (occurrence: None)
  Receive Date: 20041105
  Receipt Date: 20041026
  Transmission Date: 20050328
  Serious: Yes (Other)
  Sender: FDA-Public Use
  Company Number: NL-GLAXOSMITHKLINE-B0349745A

PATIENT
  Age: 72 Year
  Sex: Male

DRUGS (7)
  1. AMOXICILLIN AND CLAVULANATE POTASSIUM [Suspect]
     Indication: PNEUMONIA BACTERIAL
     Route: 048
     Dates: start: 20040923, end: 20040930
  2. PANTOZOL [Concomitant]
     Dosage: 20MG PER DAY
     Route: 065
  3. SELOKEEN ZOC [Concomitant]
     Dosage: 50MG PER DAY
     Route: 065
  4. SINTROM MITIS [Concomitant]
     Dosage: 1MG AS DIRECTED
     Route: 065
  5. DIAZEPAM [Concomitant]
     Dosage: 5MG PER DAY
     Route: 065
  6. BRUFEN [Concomitant]
     Dosage: 600MG PER DAY
     Route: 065
  7. GERIAFORCE [Concomitant]
     Route: 065

REACTIONS (3)
  - ERYTHEMA [None]
  - PRURITUS [None]
  - VASCULITIS [None]
